FAERS Safety Report 18094297 (Version 1)
Quarter: 2020Q3

REPORT INFORMATION
  Report Type: Report from Study
  Country: UA (occurrence: UA)
  Receive Date: 20200730
  Receipt Date: 20200730
  Transmission Date: 20201103
  Serious: Yes (Other)
  Sender: FDA-Public Use
  Company Number: UA-SEATTLE GENETICS-2018SGN03464

PATIENT
  Age: 38 Year
  Sex: Female

DRUGS (1)
  1. BRENTUXIMAB VEDOTIN [Suspect]
     Active Substance: BRENTUXIMAB VEDOTIN
     Indication: HODGKIN^S DISEASE REFRACTORY
     Dosage: 86 MILLIGRAM
     Route: 042
     Dates: start: 20190912

REACTIONS (4)
  - Meibomianitis [Unknown]
  - Inflammation [Unknown]
  - Pyrexia [Unknown]
  - Blepharitis [Unknown]

NARRATIVE: CASE EVENT DATE: 20181226
